FAERS Safety Report 4753392-8 (Version None)
Quarter: 2005Q3

REPORT INFORMATION
  Report Type: 
  Country: None (occurrence: None)
  Receive Date: 20050824
  Receipt Date: 20050819
  Transmission Date: 20060218
  Serious: Yes (Death, Hospitalization, Other)
  Sender: FDA-Public Use
  Company Number: 2005077584

PATIENT
  Age: 60 Year
  Sex: Male

DRUGS (1)
  1. SILDENAFIL (SILDENAFIL) [Suspect]
     Indication: ILL-DEFINED DISORDER
     Dosage: 400 MG (100 MG, 1 IN 1 D), ORAL
     Route: 048
     Dates: start: 20050501, end: 20050501

REACTIONS (5)
  - ALCOHOLISM [None]
  - COMA [None]
  - GASTROINTESTINAL NECROSIS [None]
  - MESENTERIC OCCLUSION [None]
  - PANCREATIC NECROSIS [None]
